FAERS Safety Report 18971697 (Version 2)
Quarter: 2021Q2

REPORT INFORMATION
  Report Type: Spontaneous
  Country: US (occurrence: US)
  Receive Date: 20210304
  Receipt Date: 20210408
  Transmission Date: 20210717
  Serious: No
  Sender: FDA-Public Use
  Company Number: US-CELGENEUS-USA-20210206368

PATIENT
  Sex: Female

DRUGS (3)
  1. ZEPOSIA [Suspect]
     Active Substance: OZANIMOD HYDROCHLORIDE
     Indication: MULTIPLE SCLEROSIS
     Dosage: 0.23?0.92MG
     Route: 048
     Dates: start: 20201230
  2. LASIX [Concomitant]
     Active Substance: FUROSEMIDE
     Indication: SWELLING
     Dosage: 20 MILLIGRAM
     Route: 065
  3. LASIX [Concomitant]
     Active Substance: FUROSEMIDE
     Indication: LYMPHOEDEMA
     Dosage: 40 MILLIGRAM
     Route: 065

REACTIONS (3)
  - Limb discomfort [Unknown]
  - Oedema peripheral [Recovering/Resolving]
  - Skin hypertrophy [Unknown]
